FAERS Safety Report 8887629 (Version 1)
Quarter: 2012Q4

REPORT INFORMATION
  Report Type: Spontaneous
  Country: US (occurrence: None)
  Receive Date: 20121101
  Receipt Date: 20121101
  Transmission Date: 20130627
  Serious: Yes (Hospitalization)
  Sender: FDA-Public Use
  Company Number: None

PATIENT
  Age: 56 Year
  Sex: Male
  Weight: 111.1 kg

DRUGS (1)
  1. RIVAROXABAN 10 MG JANSSEN [Suspect]
     Indication: DVT PROPHYLAXIS
     Dosage: 10 mg daily po
     Route: 048
     Dates: start: 20121005, end: 20121104

REACTIONS (3)
  - Haematoma [None]
  - Wound infection [None]
  - Post procedural complication [None]
